FAERS Safety Report 4618700-7 (Version None)
Quarter: 2005Q1

REPORT INFORMATION
  Report Type: 
  Country: None (occurrence: None)
  Receive Date: 20050324
  Receipt Date: 20050308
  Transmission Date: 20050727
  Serious: Yes (Other)
  Sender: FDA-Public Use
  Company Number: USA050392718

PATIENT
  Age: 49 Year
  Sex: Female

DRUGS (6)
  1. FORTEO [Suspect]
     Indication: OSTEOPOROSIS
     Dates: start: 20030227
  2. CELEXA [Concomitant]
  3. AMBIEN [Concomitant]
  4. PREMARIN [Concomitant]
  5. PRAVACHOL [Concomitant]
  6. CELEBREX [Concomitant]

REACTIONS (2)
  - CYST [None]
  - LYMPHOMA [None]
